FAERS Safety Report 7332582-4 (Version None)
Quarter: 2011Q1

REPORT INFORMATION
  Report Type: 
  Country: None (occurrence: None)
  Receive Date: 20110304
  Receipt Date: 20110228
  Transmission Date: 20110831
  Serious: Yes (Death)
  Sender: FDA-Public Use
  Company Number: PHHY2010US20600

PATIENT
  Sex: Female
  Weight: 62.132 kg

DRUGS (6)
  1. GLUCOSAMINE [Concomitant]
     Dosage: UNK
     Route: 048
  2. CALCIUM [Concomitant]
     Dosage: UNK
     Route: 048
  3. RECLAST [Suspect]
     Indication: OSTEOPOROSIS
     Dosage: UNK
     Dates: start: 20100315
  4. M.V.I. [Concomitant]
     Dosage: UNK
     Route: 048
  5. DIOVAN [Concomitant]
     Indication: HYPERTENSION
     Dosage: 80 MG, UNK
     Route: 048
  6. OMEPRAZOLE [Concomitant]
     Indication: GASTROOESOPHAGEAL REFLUX DISEASE
     Dosage: 40 MG, UNK
     Route: 048

REACTIONS (5)
  - DEATH [None]
  - DIZZINESS [None]
  - NAUSEA [None]
  - FEELING ABNORMAL [None]
  - GASTROENTERITIS VIRAL [None]
